FAERS Safety Report 7803691-8 (Version None)
Quarter: 2011Q4

REPORT INFORMATION
  Report Type: 
  Country: None (occurrence: None)
  Receive Date: 20111010
  Receipt Date: 20110930
  Transmission Date: 20120403
  Serious: Yes (Hospitalization)
  Sender: FDA-Public Use
  Company Number: US-BIOGENIDEC-2011BI036354

PATIENT
  Age: 57 Year
  Sex: Female

DRUGS (1)
  1. AVONEX [Suspect]
     Indication: MULTIPLE SCLEROSIS
     Route: 030
     Dates: start: 20000915

REACTIONS (5)
  - GASTRIC DISORDER [None]
  - INCONTINENCE [None]
  - PAIN OF SKIN [None]
  - OVERDOSE [None]
  - FEELING ABNORMAL [None]
